FAERS Safety Report 6671255-8 (Version None)
Quarter: 2010Q2

REPORT INFORMATION
  Report Type: 
  Country: None (occurrence: None)
  Receive Date: 20100406
  Receipt Date: 20100406
  Transmission Date: 20101027
  Serious: Yes (Disabling)
  Sender: FDA-Public Use
  Company Number: None

PATIENT
  Sex: Female
  Weight: 50.8029 kg

DRUGS (2)
  1. ABILIFY [Suspect]
     Indication: BIPOLAR DISORDER
     Dosage: 15, 10, 7 1/2, 5 MG DAILY ( ? OVER TEN YEARS)
     Dates: start: 20070101
  2. ABILIFY [Suspect]
     Indication: DEPRESSION
     Dosage: 15, 10, 7 1/2, 5 MG DAILY ( ? OVER TEN YEARS)
     Dates: start: 20070101

REACTIONS (5)
  - BRUXISM [None]
  - GRIMACING [None]
  - TONGUE DISORDER [None]
  - TREMOR [None]
  - UNEVALUABLE EVENT [None]
